FAERS Safety Report 16726049 (Version 1)
Quarter: 2019Q3

REPORT INFORMATION
  Report Type: Spontaneous
  Country: US (occurrence: US)
  Receive Date: 20190821
  Receipt Date: 20190821
  Transmission Date: 20191005
  Serious: Yes (Other)
  Sender: FDA-Public Use
  Company Number: US-TEVA-2019-US-1094802

PATIENT
  Sex: Female

DRUGS (1)
  1. OXYCODONE HYDROCHLORIDE. [Suspect]
     Active Substance: OXYCODONE HYDROCHLORIDE
     Route: 064

REACTIONS (5)
  - Pain [Unknown]
  - Drug screen positive [Unknown]
  - Drug withdrawal syndrome neonatal [Unknown]
  - Drug dependence [Unknown]
  - Foetal exposure during pregnancy [Unknown]
